FAERS Safety Report 17265467 (Version 1)
Quarter: 2020Q1

REPORT INFORMATION
  Report Type: Spontaneous
  Country: US (occurrence: US)
  Receive Date: 20200114
  Receipt Date: 20200114
  Transmission Date: 20200409
  Serious: No
  Sender: FDA-Public Use
  Company Number: US-TEVA-2018-US-957373

PATIENT
  Age: 36 Year
  Sex: Female

DRUGS (5)
  1. PIPERACILLIN AND TAZOBACTAM [Suspect]
     Active Substance: PIPERACILLIN SODIUM\TAZOBACTAM SODIUM
     Indication: HIDRADENITIS
     Route: 065
  2. METRONIDAZOLE. [Suspect]
     Active Substance: METRONIDAZOLE
     Indication: HIDRADENITIS
     Route: 065
  3. MEROPENEM. [Suspect]
     Active Substance: MEROPENEM
     Indication: HIDRADENITIS
     Route: 042
  4. CEFTAZIDIME. [Suspect]
     Active Substance: CEFTAZIDIME
     Indication: HIDRADENITIS
     Route: 065
  5. VANCOMYCIN [Suspect]
     Active Substance: VANCOMYCIN
     Indication: HIDRADENITIS
     Route: 065

REACTIONS (2)
  - Live birth [Unknown]
  - Maternal exposure during pregnancy [Unknown]
